FAERS Safety Report 7977091-4 (Version None)
Quarter: 2011Q4

REPORT INFORMATION
  Report Type: 
  Country: None (occurrence: None)
  Receive Date: 20111213
  Receipt Date: 20111114
  Transmission Date: 20120403
  Serious: No
  Sender: FDA-Public Use
  Company Number: US-AMGEN-USASP2011052819

PATIENT
  Age: 58 Year
  Sex: Male
  Weight: 63.492 kg

DRUGS (1)
  1. ENBREL [Suspect]
     Indication: RHEUMATOID ARTHRITIS
     Dosage: 50 MG, QWK
     Route: 058
     Dates: start: 20110901, end: 20111101

REACTIONS (2)
  - PERIPHERAL COLDNESS [None]
  - PRURITUS [None]
